FAERS Safety Report 5073366-X (Version None)
Quarter: 2006Q3

REPORT INFORMATION
  Report Type: 
  Country: None (occurrence: None)
  Receive Date: 20060808
  Receipt Date: 20060724
  Transmission Date: 20061208
  Serious: Yes (Death)
  Sender: FDA-Public Use
  Company Number: US-AMGEN-US187626

PATIENT
  Sex: Male

DRUGS (3)
  1. ENBREL [Suspect]
     Indication: RHEUMATOID ARTHRITIS
     Dates: start: 20050511
  2. METHOTREXATE [Concomitant]
  3. HUMIRA [Concomitant]

REACTIONS (2)
  - CARDIAC FAILURE [None]
  - HERNIA [None]
